FAERS Safety Report 7489270-3 (Version None)
Quarter: 2011Q2

REPORT INFORMATION
  Report Type: 
  Country: None (occurrence: None)
  Receive Date: 20110518
  Receipt Date: 20110506
  Transmission Date: 20111010
  Serious: Yes (Other)
  Sender: FDA-Public Use
  Company Number: TR-GILEAD-2011-0035995

PATIENT
  Sex: Female

DRUGS (3)
  1. LAMIVUDINE [Concomitant]
  2. VIREAD [Suspect]
     Indication: HEPATITIS B
     Route: 048
     Dates: start: 20100801
  3. METOPROLOL SUCCINATE [Concomitant]
     Indication: HYPERTENSION
     Route: 048
     Dates: start: 20100101

REACTIONS (1)
  - BLOOD POTASSIUM INCREASED [None]
